FAERS Safety Report 9322954 (Version 2)
Quarter: 2013Q2

REPORT INFORMATION
  Report Type: Spontaneous
  Country: SE (occurrence: SE)
  Receive Date: 20130603
  Receipt Date: 20130626
  Transmission Date: 20140414
  Serious: Yes (Hospitalization)
  Sender: FDA-Public Use
  Company Number: SE-ABBOTT-13X-150-1096857-00

PATIENT
  Age: 64 Year
  Sex: Female

DRUGS (3)
  1. KLACID (NEXIUM HP) [Suspect]
     Indication: HELICOBACTER INFECTION
     Dates: start: 20130403
  2. AMIMOX [Suspect]
     Indication: HELICOBACTER INFECTION
     Dates: start: 20130403
  3. ESOMEPRAZOLE [Suspect]
     Indication: HELICOBACTER INFECTION
     Dates: start: 20130403

REACTIONS (11)
  - Dysarthria [Unknown]
  - Nausea [Unknown]
  - Abdominal pain [Unknown]
  - Myalgia [Unknown]
  - Headache [Recovered/Resolved]
  - Hyperhidrosis [Unknown]
  - Muscle twitching [Unknown]
  - Gait disturbance [Unknown]
  - Musculoskeletal pain [Unknown]
  - Feeling cold [Unknown]
  - Pain [Unknown]
